FAERS Safety Report 15364507 (Version 1)
Quarter: 2018Q3

REPORT INFORMATION
  Report Type: Spontaneous
  Country: DE (occurrence: DE)
  Receive Date: 20180909
  Receipt Date: 20180909
  Transmission Date: 20181010
  Serious: Yes (Hospitalization, Other)
  Sender: FDA-Public Use
  Company Number: PHHY2018DE089726

PATIENT
  Sex: Male
  Weight: 70 kg

DRUGS (7)
  1. DEXAMETHASONE. [Suspect]
     Active Substance: DEXAMETHASONE
     Indication: PRODUCT USED FOR UNKNOWN INDICATION
     Dosage: 40 MG, UNK
     Route: 065
     Dates: start: 20180709, end: 20180730
  2. ACIC [Concomitant]
     Active Substance: ACYCLOVIR
     Indication: PROPHYLAXIS
     Dosage: 400 MG, QD
     Route: 065
     Dates: start: 20180410
  3. LENALIDOMIDE [Suspect]
     Active Substance: LENALIDOMIDE
     Indication: PLASMA CELL MYELOMA
     Dosage: 25 MG, UNK
     Route: 065
     Dates: start: 20180709, end: 20180729
  4. CARFILZOMIB [Suspect]
     Active Substance: CARFILZOMIB
     Dosage: 27 MG/M2, UNK
     Route: 042
     Dates: start: 20180716, end: 20180717
  5. COTRIM E RATIOPHARM [Concomitant]
     Indication: PROPHYLAXIS
     Dosage: 1920 MG, QW
     Route: 065
     Dates: start: 20180410
  6. CLEXANE [Concomitant]
     Active Substance: ENOXAPARIN SODIUM
     Indication: PROPHYLAXIS
     Dosage: 60 MG, QD
     Route: 065
     Dates: start: 20180721
  7. CARFILZOMIB [Suspect]
     Active Substance: CARFILZOMIB
     Indication: PLASMA CELL MYELOMA
     Dosage: 20 MG/M2, UNK
     Route: 042
     Dates: start: 20180709, end: 20180710

REACTIONS (1)
  - Pneumonia parainfluenzae viral [Recovered/Resolved]

NARRATIVE: CASE EVENT DATE: 20180720
